FAERS Safety Report 19249546 (Version 1)
Quarter: 2021Q2

REPORT INFORMATION
  Report Type: Spontaneous
  Country: US (occurrence: US)
  Receive Date: 20210512
  Receipt Date: 20210512
  Transmission Date: 20210717
  Serious: Yes (Other)
  Sender: FDA-Public Use
  Company Number: US-SA-2021SA151504

PATIENT
  Sex: Male
  Weight: 67 kg

DRUGS (6)
  1. PLAVIX [Suspect]
     Active Substance: CLOPIDOGREL BISULFATE
     Indication: THROMBOSIS
  2. ASPIRIN (E.C.) [Concomitant]
     Active Substance: ASPIRIN
     Dosage: 81 MG, QD
  3. PLAVIX [Suspect]
     Active Substance: CLOPIDOGREL BISULFATE
     Indication: MYOCARDIAL INFARCTION
     Dosage: 75 MG
     Route: 048
  4. CRESTOR [Concomitant]
     Active Substance: ROSUVASTATIN CALCIUM
  5. VITAMINE B12 [Concomitant]
     Active Substance: CYANOCOBALAMIN
  6. PLAVIX [Suspect]
     Active Substance: CLOPIDOGREL BISULFATE
     Indication: LASER THERAPY

REACTIONS (8)
  - Intervertebral disc degeneration [Unknown]
  - Product substitution issue [Unknown]
  - Myocardial ischaemia [Unknown]
  - Angina pectoris [Unknown]
  - Vascular stent occlusion [Unknown]
  - Drug ineffective [Unknown]
  - Pain in extremity [Unknown]
  - Arthropathy [Unknown]
